FAERS Safety Report 17466609 (Version 1)
Quarter: 2020Q1

REPORT INFORMATION
  Report Type: Spontaneous
  Country: FR (occurrence: FR)
  Receive Date: 20200227
  Receipt Date: 20200227
  Transmission Date: 20200409
  Serious: Yes (Hospitalization)
  Sender: FDA-Public Use
  Company Number: FR-ACCORD-173759

PATIENT
  Age: 52 Year
  Sex: Male
  Weight: 90 kg

DRUGS (7)
  1. CARBOPLATIN ACCORD [Suspect]
     Active Substance: CARBOPLATIN
     Indication: BONE CANCER
     Route: 042
     Dates: start: 20191224, end: 20191224
  2. SOLU-MEDROL [Suspect]
     Active Substance: METHYLPREDNISOLONE SODIUM SUCCINATE
     Indication: PROPHYLAXIS
     Route: 042
     Dates: start: 20191231, end: 20191231
  3. ERBITUX [Suspect]
     Active Substance: CETUXIMAB
     Indication: BONE CANCER
     Route: 042
     Dates: start: 20191231, end: 20191231
  4. FLUOROURACIL ACCORD [Suspect]
     Active Substance: FLUOROURACIL
     Indication: BONE CANCER
     Route: 042
     Dates: start: 20191224, end: 20191228
  5. SOLUPRED (PREDNISOLONE) [Suspect]
     Active Substance: PREDNISOLONE
     Indication: TUMOUR INFLAMMATION
     Dosage: STRENGTH: 20 MG
     Route: 048
     Dates: start: 20191129, end: 20200203
  6. POLARAMINE [Concomitant]
     Active Substance: DEXCHLORPHENIRAMINE MALEATE
     Indication: PROPHYLAXIS
     Route: 042
  7. DOLIPRANE [Concomitant]
     Active Substance: ACETAMINOPHEN
     Route: 048

REACTIONS (2)
  - Off label use [Unknown]
  - Duodenal ulcer perforation [Recovered/Resolved with Sequelae]

NARRATIVE: CASE EVENT DATE: 20200103
